FAERS Safety Report 17052620 (Version 1)
Quarter: 2019Q4

REPORT INFORMATION
  Report Type: Spontaneous
  Country: US (occurrence: US)
  Receive Date: 20191119
  Receipt Date: 20191119
  Transmission Date: 20200122
  Serious: Yes (Other)
  Sender: FDA-Public Use
  Company Number: None

PATIENT
  Age: 65 Year
  Sex: Male
  Weight: 78 kg

DRUGS (11)
  1. AZELASTINE NASAL SPRAY [Concomitant]
     Active Substance: AZELASTINE
     Dates: start: 20190408
  2. PRIVIGEN [Concomitant]
     Active Substance: HUMAN IMMUNOGLOBULIN G
     Dates: start: 20140110
  3. MULTI VITAMIN [Concomitant]
     Active Substance: VITAMINS
     Dates: start: 20090612
  4. FILGRASTIM 480MCG [Concomitant]
     Dates: start: 20191024
  5. FLUTICASONE NASAL SPRAY [Concomitant]
     Active Substance: FLUTICASONE
     Dates: start: 20170605
  6. VALACYCLOVIR 1G TABS [Concomitant]
     Dates: start: 20181219
  7. ALLOPURINOL 300MG TABS [Concomitant]
     Dates: start: 20190819
  8. CLOBETASOL 0.05% CREAM [Concomitant]
     Active Substance: CLOBETASOL
     Dates: start: 20191021
  9. VENETOCLAX. [Suspect]
     Active Substance: VENETOCLAX
     Indication: CHRONIC LYMPHOCYTIC LEUKAEMIA
     Route: 048
     Dates: start: 20191022
  10. CERAVE [Concomitant]
     Dates: start: 20191021
  11. PANTOPRAZOLE 40MG TABS [Concomitant]
     Dates: start: 20191016

REACTIONS (1)
  - Skin hyperpigmentation [None]

NARRATIVE: CASE EVENT DATE: 20191119
